FAERS Safety Report 19172680 (Version 1)
Quarter: 2021Q2

REPORT INFORMATION
  Report Type: Spontaneous
  Country: US (occurrence: US)
  Receive Date: 20210423
  Receipt Date: 20210423
  Transmission Date: 20210717
  Serious: No
  Sender: FDA-Public Use
  Company Number: US-AMGEN-USASP2021060937

PATIENT
  Age: 41 Year
  Sex: Female

DRUGS (10)
  1. NYSTOP [Concomitant]
     Active Substance: NYSTATIN
  2. ESZOPICLONE. [Concomitant]
     Active Substance: ESZOPICLONE
  3. METOPROLOL. [Concomitant]
     Active Substance: METOPROLOL
  4. MIRTAZAPINE. [Concomitant]
     Active Substance: MIRTAZAPINE
  5. XARELTO [Concomitant]
     Active Substance: RIVAROXABAN
  6. OTEZLA [Suspect]
     Active Substance: APREMILAST
     Indication: PSORIASIS
     Dosage: 30 MILLIGRAM, BID
     Route: 048
     Dates: start: 20200312
  7. AMLODIPINE [Concomitant]
     Active Substance: AMLODIPINE BESYLATE
  8. PENTOXIFYLLINE. [Concomitant]
     Active Substance: PENTOXIFYLLINE
  9. ATORVASTATIN [Concomitant]
     Active Substance: ATORVASTATIN
  10. FLUOXETINE [Concomitant]
     Active Substance: FLUOXETINE HYDROCHLORIDE

REACTIONS (2)
  - Pyrexia [Recovering/Resolving]
  - Chills [Recovering/Resolving]

NARRATIVE: CASE EVENT DATE: 20210419
